FAERS Safety Report 7491782-3 (Version None)
Quarter: 2011Q2

REPORT INFORMATION
  Report Type: 
  Country: None (occurrence: None)
  Receive Date: 20110519
  Receipt Date: 20090930
  Transmission Date: 20111010
  Serious: Yes (Death, Hospitalization, Other)
  Sender: FDA-Public Use
  Company Number: US-BAYER-200934871NA

PATIENT
  Age: 66 Year
  Sex: Male
  Weight: 104 kg

DRUGS (19)
  1. TRASYLOL [Suspect]
     Indication: AORTIC SURGERY
  2. PLATELETS [Concomitant]
  3. LISINOPRIL [Concomitant]
     Dosage: 10 MG TWICE DAILY
     Route: 048
  4. CRYOPRECIPITATES [Concomitant]
     Dosage: 20 UNITS
     Dates: start: 20050309
  5. TRASYLOL [Suspect]
     Indication: AORTIC VALVE REPLACEMENT
     Dosage: INITAL TEST DOSE OF 1 ML
     Route: 042
     Dates: start: 20050309, end: 20050309
  6. COUMADIN [Concomitant]
     Dosage: 10 MG EVEN DAYS, 5 MG ODD DAYS
     Route: 048
  7. AMIODARONE HCL [Concomitant]
     Dosage: 200 MG DAILY OR 400 MG TWICE DAILY
     Route: 048
     Dates: start: 20041026
  8. AMIODARONE HCL [Concomitant]
     Dosage: 33 CC / PER HOUR
     Route: 042
     Dates: start: 20050309
  9. PLASMA [Concomitant]
     Dosage: 4 UNITS
     Dates: start: 20050309
  10. RED BLOOD CELLS [Concomitant]
     Dosage: 20 UNITS
     Dates: start: 20050309
  11. METOPROLOL TARTRATE [Concomitant]
     Dosage: 25 MG
  12. LOTENSIN [Concomitant]
     Dosage: 10 MG TWICE DAILY
     Route: 048
  13. DIGOXIN [Concomitant]
     Dosage: 0.125 MG
     Route: 048
  14. PROTAMINE SULFATE [Concomitant]
     Dosage: UNK
     Route: 042
     Dates: start: 20050309
  15. TRASYLOL [Suspect]
     Indication: COX-MAZE PROCEDURE
     Dosage: LOADING DOSE OF 200 ML OVER 30 MINUTES, THEN 50 ML/HR
     Route: 042
     Dates: start: 20050309, end: 20050309
  16. INSULIN [Concomitant]
     Dosage: UNK
     Route: 042
     Dates: start: 20050309
  17. TRASYLOL [Suspect]
     Indication: MITRAL VALVE REPLACEMENT
  18. LASIX [Concomitant]
     Dosage: 20 MG DAILY
     Route: 048
  19. NITROGLYCERIN [Concomitant]
     Route: 060

REACTIONS (13)
  - DEATH [None]
  - FEAR [None]
  - EMOTIONAL DISTRESS [None]
  - ANHEDONIA [None]
  - RENAL INJURY [None]
  - PAIN [None]
  - INJURY [None]
  - RENAL IMPAIRMENT [None]
  - RENAL FAILURE [None]
  - MULTI-ORGAN FAILURE [None]
  - STRESS [None]
  - ANXIETY [None]
  - UNEVALUABLE EVENT [None]
